FAERS Safety Report 8309993-3 (Version None)
Quarter: 2012Q2

REPORT INFORMATION
  Report Type: 
  Country: None (occurrence: None)
  Receive Date: 20120425
  Receipt Date: 20120423
  Transmission Date: 20120825
  Serious: Yes (Death, Other)
  Sender: FDA-Public Use
  Company Number: US-PFIZER INC-2012099769

PATIENT
  Sex: Female
  Weight: 36.281 kg

DRUGS (1)
  1. LIPITOR [Suspect]
     Dosage: 10 MG, DAILY
     Route: 048

REACTIONS (2)
  - LUNG NEOPLASM MALIGNANT [None]
  - WEIGHT DECREASED [None]
